FAERS Safety Report 8504494-1 (Version None)
Quarter: 2012Q3

REPORT INFORMATION
  Report Type: 
  Country: None (occurrence: None)
  Receive Date: 20120711
  Receipt Date: 20120703
  Transmission Date: 20120928
  Serious: Yes (Hospitalization)
  Sender: FDA-Public Use
  Company Number: US-JNJFOC-20120702850

PATIENT
  Sex: Female
  Weight: 76.2 kg

DRUGS (2)
  1. SIMPONI [Suspect]
     Indication: RHEUMATOID ARTHRITIS
     Route: 058
     Dates: start: 20120201
  2. CELEBREX [Concomitant]
     Indication: ANTIINFLAMMATORY THERAPY
     Route: 048
     Dates: start: 20040101

REACTIONS (5)
  - ASTHMA [None]
  - RASH ERYTHEMATOUS [None]
  - DRUG EFFECT DECREASED [None]
  - VASCULITIS [None]
  - ARTHRITIS [None]
